FAERS Safety Report 7277392-1 (Version None)
Quarter: 2011Q1

REPORT INFORMATION
  Report Type: 
  Country: None (occurrence: None)
  Receive Date: 20110207
  Receipt Date: 20110128
  Transmission Date: 20110831
  Serious: Yes (Hospitalization)
  Sender: FDA-Public Use
  Company Number: US-US-EMD SERONO, INC.-7039196

PATIENT
  Sex: Female
  Weight: 86 kg

DRUGS (10)
  1. CYMBALTA [Concomitant]
     Indication: NEUROPATHY PERIPHERAL
  2. PROMETHAZINE [Concomitant]
  3. LYRICA [Concomitant]
     Indication: NEUROPATHY PERIPHERAL
  4. TRIAZADONE [Concomitant]
  5. REBIF [Suspect]
     Route: 058
     Dates: start: 20101209
  6. BACLOFEN [Concomitant]
     Indication: MUSCLE SPASMS
  7. ESTROGENIC SUBSTANCE [Suspect]
     Indication: HYSTERECTOMY
     Dates: start: 20090101, end: 20110101
  8. METHOTREXATE [Concomitant]
     Indication: MULTIPLE SCLEROSIS
     Dates: start: 20100901, end: 20101201
  9. REBIF [Suspect]
     Indication: MULTIPLE SCLEROSIS
     Route: 058
     Dates: start: 20090618, end: 20100913
  10. GABAPENTIN [Concomitant]
     Indication: NEUROPATHY PERIPHERAL

REACTIONS (7)
  - PULMONARY EMBOLISM [None]
  - INJECTION SITE PAIN [None]
  - INJECTION SITE MASS [None]
  - INJECTION SITE URTICARIA [None]
  - INJECTION SITE HAEMATOMA [None]
  - ENDOMETRIOSIS [None]
  - INJECTION SITE SWELLING [None]
